FAERS Safety Report 26131752 (Version 2)
Quarter: 2025Q4

REPORT INFORMATION
  Report Type: Spontaneous
  Country: US (occurrence: US)
  Receive Date: 20251208
  Receipt Date: 20251211
  Transmission Date: 20260119
  Serious: Yes (Hospitalization)
  Sender: BRISTOL-MYERS SQUIBB COMPANY
  Company Number: US-BRISTOL-MYERS SQUIBB COMPANY-2025-164787

PATIENT
  Age: 85 Year
  Sex: Male
  Weight: 84.82 kg

DRUGS (2)
  1. POMALYST [Suspect]
     Active Substance: POMALIDOMIDE
     Indication: Plasma cell myeloma
     Dosage: DAILY, 1 WEEK ON 1 WEEK OFF FOR A 28 DAY CYCLE.
     Route: 048
  2. POMALYST [Suspect]
     Active Substance: POMALIDOMIDE
     Dosage: ONCE DAILY ON?WEEK 1, THEN THE?NEXT WEEK OFF,?THEN REPEAT
     Route: 048

REACTIONS (1)
  - Hospitalisation [Recovering/Resolving]
